FAERS Safety Report 8211322-0 (Version None)
Quarter: 2012Q1

REPORT INFORMATION
  Report Type: 
  Country: None (occurrence: None)
  Receive Date: 20120228
  Receipt Date: 20111010
  Transmission Date: 20120608
  Serious: Yes (Hospitalization, Other)
  Sender: FDA-Public Use
  Company Number: RB-31851-2011

PATIENT
  Sex: Female

DRUGS (7)
  1. SOMA [Concomitant]
  2. TRAZODONE HCL [Concomitant]
  3. CELEXA [Concomitant]
  4. COGENTIN [Concomitant]
  5. SUBOXONE [Suspect]
     Indication: DRUG DEPENDENCE
     Dosage: (8 MG  BID SUBLINGUAL)
     Route: 060
     Dates: start: 20110711, end: 20110824
  6. WELLBUTRIN [Concomitant]
  7. NEURONTIN [Concomitant]

REACTIONS (1)
  - HEPATIC FAILURE [None]
